FAERS Safety Report 7718634-5 (Version None)
Quarter: 2011Q3

REPORT INFORMATION
  Report Type: 
  Country: None (occurrence: None)
  Receive Date: 20110830
  Receipt Date: 20110819
  Transmission Date: 20111222
  Serious: Yes (Death, Other)
  Sender: FDA-Public Use
  Company Number: JP-BAYER-2011-054534

PATIENT
  Age: 70 Year
  Sex: Male
  Weight: 67 kg

DRUGS (13)
  1. MAGNEVIST [Suspect]
     Indication: NUCLEAR MAGNETIC RESONANCE IMAGING
     Dosage: 14 ML, ONCE, AT 2.5 ML/SEC INTO THE ANTECUBITAL VEIN
     Route: 042
     Dates: start: 20110624, end: 20110624
  2. ALDOMET [Concomitant]
     Route: 048
  3. MEXITIL [Concomitant]
     Route: 065
  4. MUCOSTA [Concomitant]
     Route: 048
  5. PREDNISOLONE [Concomitant]
     Route: 065
  6. CARVEDILOL [Concomitant]
     Route: 048
  7. FOSRENOL [Concomitant]
     Dosage: UNK
     Route: 048
  8. HALCION [Concomitant]
     Route: 048
  9. CINACALCET HYDROCHLORIDE [Concomitant]
     Route: 048
  10. TICLOPIDINE HCL [Concomitant]
     Route: 048
  11. CALCIUM CARBONATE [Concomitant]
     Dosage: UNK
     Route: 048
  12. SENNOSIDE [Concomitant]
     Route: 048
  13. OMEPRAZON [Concomitant]
     Route: 048

REACTIONS (9)
  - ANAPHYLACTIC SHOCK [None]
  - VOMITING [None]
  - CARDIAC ARREST [None]
  - LOSS OF CONSCIOUSNESS [None]
  - BLOOD PRESSURE DECREASED [None]
  - HAEMATOCHEZIA [None]
  - INTESTINAL ISCHAEMIA [None]
  - BLOOD CREATINE PHOSPHOKINASE INCREASED [None]
  - NAUSEA [None]
